FAERS Safety Report 19064582 (Version 1)
Quarter: 2021Q1

REPORT INFORMATION
  Report Type: Spontaneous
  Country: AR (occurrence: AR)
  Receive Date: 20210326
  Receipt Date: 20210326
  Transmission Date: 20210420
  Serious: Yes (Hospitalization, Other)
  Sender: FDA-Public Use
  Company Number: AR-MYLANLABS-2021M1017831

PATIENT
  Sex: Male

DRUGS (2)
  1. LAPENAX [Suspect]
     Active Substance: CLOZAPINE
     Indication: AGGRESSION
     Dosage: UNK
     Dates: start: 202101
  2. LAPENAX [Suspect]
     Active Substance: CLOZAPINE
     Indication: BEHAVIOUR DISORDER
     Dosage: 300 MILLIGRAM, QD
     Dates: start: 201909

REACTIONS (3)
  - Neutropenia [Unknown]
  - Behaviour disorder [Unknown]
  - Off label use [Unknown]

NARRATIVE: CASE EVENT DATE: 201909
